FAERS Safety Report 24876062 (Version 1)
Quarter: 2025Q1

REPORT INFORMATION
  Report Type: Spontaneous
  Country: JP (occurrence: JP)
  Receive Date: 20250123
  Receipt Date: 20250123
  Transmission Date: 20250409
  Serious: Yes (Other)
  Sender: SANDOZ
  Company Number: JP-SANDOZ-SDZ2025JP002467

PATIENT
  Age: 67 Year
  Sex: Female

DRUGS (8)
  1. DECADRON (DEXAMETHASONE SODIUM PHOSPHATE) [Suspect]
     Active Substance: DEXAMETHASONE SODIUM PHOSPHATE
     Indication: Plasma cell myeloma
     Route: 065
     Dates: start: 202204
  2. DECADRON (DEXAMETHASONE SODIUM PHOSPHATE) [Suspect]
     Active Substance: DEXAMETHASONE SODIUM PHOSPHATE
     Route: 065
     Dates: start: 202209
  3. DARATUMUMAB [Suspect]
     Active Substance: DARATUMUMAB
     Indication: Plasma cell myeloma
     Route: 065
     Dates: start: 202204
  4. DARATUMUMAB [Suspect]
     Active Substance: DARATUMUMAB
     Route: 065
     Dates: start: 202209
  5. IMURAN [Suspect]
     Active Substance: AZATHIOPRINE
     Indication: Pachymeningitis
     Route: 048
     Dates: start: 201907
  6. LENALIDOMIDE [Suspect]
     Active Substance: LENALIDOMIDE
     Indication: Plasma cell myeloma
     Route: 065
     Dates: start: 202204
  7. LENALIDOMIDE [Suspect]
     Active Substance: LENALIDOMIDE
     Route: 065
     Dates: start: 202209
  8. PREDNISOLONE [Suspect]
     Active Substance: PREDNISOLONE
     Indication: Pachymeningitis
     Route: 048
     Dates: start: 201907

REACTIONS (3)
  - Cytopenia [Unknown]
  - Cytomegalovirus infection [Recovering/Resolving]
  - Cytomegalovirus infection reactivation [Recovering/Resolving]
